FAERS Safety Report 21721972 (Version 1)
Quarter: 2022Q4

REPORT INFORMATION
  Report Type: Spontaneous
  Country: HR (occurrence: HR)
  Receive Date: 20221213
  Receipt Date: 20221213
  Transmission Date: 20230113
  Serious: Yes (Other)
  Sender: FDA-Public Use
  Company Number: None

PATIENT
  Age: 12 Year
  Sex: Female

DRUGS (4)
  1. ARIPIPRAZOLE [Suspect]
     Active Substance: ARIPIPRAZOLE
     Indication: Product used for unknown indication
     Dosage: 5 AND 5 MG, UNIT DOSE : 25 MG, FREQUENCY TIME : 1 DAYS, DURATION : 1 DAYS
     Route: 065
     Dates: start: 20221028, end: 20221028
  2. SERTRALINE HYDROCHLORIDE [Suspect]
     Active Substance: SERTRALINE HYDROCHLORIDE
     Indication: Product used for unknown indication
     Dosage: 7 AND 50 MG, UNIT DOSE : 350 MG, FREQUENCY TIME : 1DAYS, DURATION : 1 DAYS
     Route: 065
     Dates: start: 20221028, end: 20221028
  3. IBUPROFEN [Suspect]
     Active Substance: IBUPROFEN
     Indication: Product used for unknown indication
     Dosage: UNIT DOSE : 1600 MG, FREQUENCY TIME : 1 DAYS, DURATION : 1 DAYS
     Route: 065
     Dates: start: 20221028, end: 20221028
  4. ALPRAZOLAM [Suspect]
     Active Substance: ALPRAZOLAM
     Indication: Product used for unknown indication
     Dosage: 15 AND 0.5 MG, UNIT DOSE : 7.5 MG, FREQUENCY TIME : 1 DAYS, DURATION : 1 DAYS
     Route: 065
     Dates: start: 20221028, end: 20221028

REACTIONS (4)
  - Suicide attempt [Unknown]
  - Intentional overdose [Unknown]
  - Somnolence [Unknown]
  - Nausea [Unknown]

NARRATIVE: CASE EVENT DATE: 20221028
